FAERS Safety Report 8168309-6 (Version None)
Quarter: 2012Q1

REPORT INFORMATION
  Report Type: 
  Country: None (occurrence: None)
  Receive Date: 20120227
  Receipt Date: 20120221
  Transmission Date: 20120608
  Serious: Yes (Hospitalization)
  Sender: FDA-Public Use
  Company Number: CN-MERCK-1201CHN00152

PATIENT
  Age: 4 Year
  Sex: Male

DRUGS (10)
  1. PREDNISONE [Concomitant]
     Indication: ASTHMA
     Route: 048
     Dates: start: 20110915
  2. SINGULAIR [Suspect]
     Indication: BRONCHOPNEUMONIA
     Route: 048
     Dates: start: 20110915, end: 20110917
  3. AZITHROMYCIN [Concomitant]
     Indication: BRONCHOPNEUMONIA
     Route: 048
     Dates: start: 20110915
  4. PREDNISONE [Concomitant]
     Indication: BRONCHOPNEUMONIA
     Route: 048
     Dates: start: 20110915
  5. AMBROXOL HYDROCHLORIDE AND CLENBUTEROL HYDROCHLORIDE [Concomitant]
     Indication: BRONCHOPNEUMONIA
     Route: 048
     Dates: start: 20110915
  6. SINGULAIR [Suspect]
     Indication: ASTHMA
     Route: 048
     Dates: start: 20110915, end: 20110917
  7. ALBUTEROL SULFATE AND IPRATROPIUM BROMIDE [Concomitant]
     Indication: ASTHMA
     Route: 055
     Dates: start: 20110915
  8. ALBUTEROL SULFATE AND IPRATROPIUM BROMIDE [Concomitant]
     Indication: BRONCHOPNEUMONIA
     Route: 055
     Dates: start: 20110915
  9. AMBROXOL HYDROCHLORIDE AND CLENBUTEROL HYDROCHLORIDE [Concomitant]
     Indication: ASTHMA
     Route: 048
     Dates: start: 20110915
  10. AZITHROMYCIN [Concomitant]
     Indication: ASTHMA
     Route: 048
     Dates: start: 20110915

REACTIONS (1)
  - PARTIAL SEIZURES WITH SECONDARY GENERALISATION [None]
